FAERS Safety Report 10569743 (Version 1)
Quarter: 2014Q4

REPORT INFORMATION
  Report Type: Spontaneous
  Country: DE (occurrence: DE)
  Receive Date: 20141107
  Receipt Date: 20141107
  Transmission Date: 20150529
  Serious: Yes (Other)
  Sender: FDA-Public Use
  Company Number: DE-ROCHE-1486577

PATIENT
  Sex: Male
  Weight: 67 kg

DRUGS (5)
  1. ASPIRIN. [Concomitant]
     Active Substance: ASPIRIN
  2. ACTILYSE [Suspect]
     Active Substance: ALTEPLASE
     Indication: ISCHAEMIA
  3. ACTILYSE [Suspect]
     Active Substance: ALTEPLASE
     Indication: HEMIPARESIS
  4. ACTILYSE [Suspect]
     Active Substance: ALTEPLASE
     Indication: CEREBROVASCULAR ACCIDENT
     Route: 042
  5. ACTILYSE [Suspect]
     Active Substance: ALTEPLASE
     Indication: CAROTID ARTERIOSCLEROSIS

REACTIONS (2)
  - Hemiparesis [Recovered/Resolved]
  - Ischaemic stroke [Recovered/Resolved]
